FAERS Safety Report 6663732-0 (Version None)
Quarter: 2010Q2

REPORT INFORMATION
  Report Type: 
  Country: None (occurrence: None)
  Receive Date: 20100401
  Receipt Date: 20100322
  Transmission Date: 20101027
  Serious: Yes (Death)
  Sender: FDA-Public Use
  Company Number: AT-PFIZER INC-2010036191

PATIENT
  Age: 88 Year
  Sex: Male

DRUGS (5)
  1. SUPRESSIN [Suspect]
     Dosage: 2 MG DAILY
     Route: 048
  2. LISINOPRIL AND HYDROCHLOROTHIAZIDE [Suspect]
     Dosage: 10MG/12.5 MG DAILY
     Route: 048
  3. MORPHINE SULFATE [Suspect]
     Dosage: 10 MG, AS NEEDED
     Route: 048
  4. TEBOFORTAN [Suspect]
     Dosage: 40 MG, 2X/DAY
     Route: 048
  5. SERENOA REPENS FRUIT EXTRACT [Suspect]
     Dosage: 1 CAPSULE DAILY
     Route: 048

REACTIONS (1)
  - COMPLETED SUICIDE [None]
